FAERS Safety Report 5070527-0 (Version None)
Quarter: 2006Q3

REPORT INFORMATION
  Report Type: 
  Country: None (occurrence: None)
  Receive Date: 20060804
  Receipt Date: 20060726
  Transmission Date: 20061208
  Serious: Yes (Other)
  Sender: FDA-Public Use
  Company Number: FR-JNJFOC-20060705654

PATIENT
  Age: 29 Year
  Sex: Female

DRUGS (4)
  1. REMICADE [Suspect]
     Dosage: 12TH INFUSION
     Route: 042
  2. REMICADE [Suspect]
     Dosage: 12 INFUSION; EVENTS OCCURRED AFTER THE 11TH AND 12TH INFUSIONS.
     Route: 042
  3. REMICADE [Suspect]
     Indication: CROHN'S DISEASE
     Route: 042
  4. IMUREL [Concomitant]
     Indication: CROHN'S DISEASE

REACTIONS (5)
  - DEMYELINATION [None]
  - FORMICATION [None]
  - HERPES SIMPLEX [None]
  - MIGRAINE [None]
  - VISUAL FIELD DEFECT [None]
